FAERS Safety Report 4763573-5 (Version None)
Quarter: 2005Q3

REPORT INFORMATION
  Report Type: 
  Country: None (occurrence: None)
  Receive Date: 20050908
  Receipt Date: 20050318
  Transmission Date: 20060218
  Serious: Yes (Hospitalization, Other)
  Sender: FDA-Public Use
  Company Number: US-MERCK-0503USA03845

PATIENT
  Age: 47 Year
  Sex: Male
  Weight: 84 kg

DRUGS (9)
  1. VIOXX [Suspect]
     Indication: ARTHRALGIA
     Route: 048
     Dates: start: 19990101, end: 20030801
  2. COUMADIN [Concomitant]
     Route: 065
     Dates: start: 20010101, end: 20030101
  3. [THERAPY UNSPECIFIED] [Concomitant]
     Route: 065
     Dates: start: 19800101
  4. ASPIRIN [Concomitant]
     Route: 065
  5. WELLBUTRIN [Concomitant]
     Route: 065
  6. PREDNISONE [Concomitant]
     Route: 065
  7. COMPAZINE [Concomitant]
     Route: 065
  8. OXYCONTIN [Concomitant]
     Route: 065
  9. ACIPHEX [Concomitant]
     Route: 065

REACTIONS (50)
  - ABDOMINAL PAIN [None]
  - ACUTE SINUSITIS [None]
  - ALVEOLITIS [None]
  - ARACHNOID CYST [None]
  - ARTHROPATHY [None]
  - CELLULITIS [None]
  - CEREBROVASCULAR ACCIDENT [None]
  - CHEST PAIN [None]
  - CONSTIPATION [None]
  - CYSTITIS [None]
  - DEEP VEIN THROMBOSIS [None]
  - DERMATITIS CONTACT [None]
  - DIZZINESS [None]
  - DYSPEPSIA [None]
  - DYSPNOEA [None]
  - ELECTROCARDIOGRAM QRS COMPLEX ABNORMAL [None]
  - ELECTROCARDIOGRAM T WAVE INVERSION [None]
  - ESSENTIAL HYPERTENSION [None]
  - FACIAL PALSY [None]
  - FIBROMYALGIA [None]
  - GASTROOESOPHAGEAL REFLUX DISEASE [None]
  - HYPERCOAGULATION [None]
  - HYPERTENSION [None]
  - HYPOAESTHESIA [None]
  - HYPOCOAGULABLE STATE [None]
  - HYPOGONADISM [None]
  - HYPOXIA [None]
  - IMPETIGO [None]
  - INTERNATIONAL NORMALISED RATIO DECREASED [None]
  - INTERSTITIAL LUNG DISEASE [None]
  - LIMB TRAUMATIC AMPUTATION [None]
  - LIPOMA [None]
  - LUNG INFILTRATION [None]
  - LUNG NEOPLASM [None]
  - LUPUS-LIKE SYNDROME [None]
  - LYMPHADENOPATHY MEDIASTINAL [None]
  - MENTAL STATUS CHANGES [None]
  - OEDEMA PERIPHERAL [None]
  - PLEURITIC PAIN [None]
  - PNEUMONIA [None]
  - PNEUMONITIS [None]
  - PULMONARY EMBOLISM [None]
  - PULMONARY FIBROSIS [None]
  - PULMONARY INFARCTION [None]
  - RASH PRURITIC [None]
  - REITER'S SYNDROME [None]
  - SINUSITIS [None]
  - SYSTEMIC LUPUS ERYTHEMATOSUS [None]
  - TRANSIENT ISCHAEMIC ATTACK [None]
  - VASCULITIS [None]
